FAERS Safety Report 7268262-3 (Version None)
Quarter: 2011Q1

REPORT INFORMATION
  Report Type: 
  Country: None (occurrence: None)
  Receive Date: 20110201
  Receipt Date: 20110119
  Transmission Date: 20110831
  Serious: Yes (Death, Hospitalization)
  Sender: FDA-Public Use
  Company Number: IN-JNJFOC-20110100154

PATIENT
  Age: 68 Year
  Sex: Male

DRUGS (4)
  1. EFFIENT [Concomitant]
     Indication: PERCUTANEOUS CORONARY INTERVENTION
  2. ASPIRIN [Concomitant]
     Indication: ILL-DEFINED DISORDER
  3. REOPRO [Suspect]
     Indication: PERCUTANEOUS CORONARY INTERVENTION
  4. EFFIENT [Concomitant]

REACTIONS (1)
  - GASTROINTESTINAL HAEMORRHAGE [None]
